FAERS Safety Report 8878575 (Version 1)
Quarter: 2012Q4

REPORT INFORMATION
  Report Type: 
  Country: US (occurrence: US)
  Receive Date: 20121025
  Receipt Date: 20121025
  Transmission Date: 20130627
  Serious: No
  Sender: FDA-Public Use
  Company Number: US-AMGEN-USASP2012014222

PATIENT
  Age: 58 Year
  Sex: Female

DRUGS (12)
  1. ENBREL [Suspect]
     Indication: RHEUMATOID ARTHRITIS
     Dosage: 50 mg, qwk
     Route: 058
     Dates: start: 20120214
  2. ENBREL [Suspect]
     Dates: start: 20120214
  3. PREMARIN [Concomitant]
     Dosage: 0.3 mg, UNK
  4. BUPROPION [Concomitant]
     Dosage: 75 mg, UNK
  5. GABAPENTIN [Concomitant]
     Dosage: 100 mg, UNK
  6. METHOTREXATE [Concomitant]
     Dosage: 8 mg, qwk
     Dates: start: 20110401
  7. METHOTREXATE [Concomitant]
     Dates: start: 20110401
  8. FOLIC ACID [Concomitant]
     Dosage: UNK
  9. LISINOPRIL [Concomitant]
     Dosage: 5 mg, UNK
  10. ALPHA LIPOIC ACID [Concomitant]
     Dosage: 100 mg, UNK
  11. CALCIUM + VIT D [Concomitant]
  12. MULTIVITAMIN                       /00097801/ [Concomitant]
     Dosage: UNK

REACTIONS (1)
  - Headache [Recovered/Resolved]
